FAERS Safety Report 15952851 (Version 2)
Quarter: 2019Q1

REPORT INFORMATION
  Report Type: Report from Study
  Country: US (occurrence: US)
  Receive Date: 20190212
  Receipt Date: 20190319
  Transmission Date: 20190417
  Serious: Yes (Hospitalization)
  Sender: FDA-Public Use
  Company Number: US-GILEAD-2019-0390029

PATIENT
  Age: 79 Year
  Sex: Female

DRUGS (12)
  1. VITAMIN D3 [Concomitant]
     Active Substance: CHOLECALCIFEROL
  2. FLONASE [Concomitant]
     Active Substance: FLUTICASONE PROPIONATE
  3. AMBRISENTAN [Suspect]
     Active Substance: AMBRISENTAN
     Indication: PULMONARY ARTERIAL HYPERTENSION
     Dosage: 10 MG, QD
     Route: 048
     Dates: start: 200811
  4. TYVASO [Concomitant]
     Active Substance: TREPROSTINIL
  5. FUROSEMIDE. [Concomitant]
     Active Substance: FUROSEMIDE
  6. LOSARTAN. [Concomitant]
     Active Substance: LOSARTAN
  7. FERROUS SULFATE. [Concomitant]
     Active Substance: FERROUS SULFATE
  8. REFRESH P.M. [Concomitant]
     Active Substance: MINERAL OIL\PETROLATUM
  9. OMEPRAZOLE. [Concomitant]
     Active Substance: OMEPRAZOLE
  10. VITAMIN C [Concomitant]
     Active Substance: ASCORBIC ACID
  11. SILDENAFIL. [Concomitant]
     Active Substance: SILDENAFIL
  12. MIRALAX [Concomitant]
     Active Substance: POLYETHYLENE GLYCOL 3350

REACTIONS (2)
  - Anaemia [Unknown]
  - Rectal haemorrhage [Unknown]

NARRATIVE: CASE EVENT DATE: 20190101
